FAERS Safety Report 7084203-6 (Version None)
Quarter: 2010Q4

REPORT INFORMATION
  Report Type: 
  Country: None (occurrence: None)
  Receive Date: 20101026
  Receipt Date: 20101015
  Transmission Date: 20110411
  Serious: Yes (Death, Life-Threatening, Hospitalization, Other)
  Sender: FDA-Public Use
  Company Number: 2010AC000535

PATIENT
  Age: 67 Year
  Sex: Female

DRUGS (33)
  1. DIGOXIN [Suspect]
     Dosage: 0.125 MG; QD; PO
     Route: 048
     Dates: start: 20070821, end: 20071009
  2. COUMADIN [Concomitant]
  3. PEPCID [Concomitant]
  4. LANTUS [Concomitant]
  5. XOPENEX HFA [Concomitant]
  6. DUONEB [Concomitant]
  7. ASPIRIN [Concomitant]
  8. ZOCOR [Concomitant]
  9. ADVAIR DISKUS 100/50 [Concomitant]
  10. PLAVIX [Concomitant]
  11. LASIX [Concomitant]
  12. POTASSIUM CHLORIDE [Concomitant]
  13. CARDIZEM [Concomitant]
  14. REGLAN [Concomitant]
  15. NOVOLOG [Concomitant]
  16. MECLIZINE [Concomitant]
  17. LOVENOX [Concomitant]
  18. ZOSYN [Concomitant]
  19. CIPRO [Concomitant]
  20. AMIODARONE [Concomitant]
  21. COMPAZINE [Concomitant]
  22. HUMALOG [Concomitant]
  23. SPIRONOLACTONE [Concomitant]
  24. SPIRIVA [Concomitant]
  25. METOCLOPRAMIDE [Concomitant]
  26. GUAIFENESIN [Concomitant]
  27. LIPITOR [Concomitant]
  28. FAMOTIDINE [Concomitant]
  29. MOLASSES ENEMAS [Concomitant]
  30. FLEET PHOSPHO-SODA [Concomitant]
  31. VASOPRESSIN [Concomitant]
  32. DOPAMINE [Concomitant]
  33. LEVOPHED [Concomitant]

REACTIONS (17)
  - ACUTE RESPIRATORY FAILURE [None]
  - CARDIAC FAILURE CONGESTIVE [None]
  - CONDITION AGGRAVATED [None]
  - DEAFNESS UNILATERAL [None]
  - DIZZINESS [None]
  - DRUG LEVEL BELOW THERAPEUTIC [None]
  - EMOTIONAL DISTRESS [None]
  - HERPES ZOSTER OTICUS [None]
  - MULTIPLE INJURIES [None]
  - OTITIS MEDIA [None]
  - PAIN [None]
  - PNEUMONIA [None]
  - PSEUDOMONAS INFECTION [None]
  - PULMONARY ARTERIAL WEDGE PRESSURE INCREASED [None]
  - PULMONARY FIBROSIS [None]
  - RENAL FAILURE [None]
  - TINNITUS [None]
